FAERS Safety Report 4557780-4 (Version None)
Quarter: 2005Q1

REPORT INFORMATION
  Report Type: 
  Country: None (occurrence: None)
  Receive Date: 20050118
  Receipt Date: 20031029
  Transmission Date: 20050727
  Serious: Yes (Disabling)
  Sender: FDA-Public Use
  Company Number: 6531

PATIENT
  Age: 55 Year
  Sex: Female

DRUGS (11)
  1. METHOTREXATE [Suspect]
     Indication: RHEUMATOID ARTHRITIS
     Dosage: 15 MG WEEKLY PO
     Route: 048
     Dates: end: 20030901
  2. CO-AMILOZIDE [Concomitant]
  3. ATENOLOL [Concomitant]
  4. WARFARIN [Concomitant]
  5. SIMVASTATIN [Concomitant]
  6. ROFECOXIB [Concomitant]
  7. NIFEDIPINE [Concomitant]
  8. OMEPRAZOLE [Concomitant]
  9. CO-PROXAMOL [Concomitant]
  10. METOCLOPRAMIDE [Concomitant]
  11. LEVOTHYROXINE [Concomitant]

REACTIONS (4)
  - DYSPNOEA [None]
  - HYPERSENSITIVITY [None]
  - OBLITERATIVE BRONCHIOLITIS [None]
  - WHEEZING [None]
